FAERS Safety Report 8303333-1 (Version None)
Quarter: 2012Q2

REPORT INFORMATION
  Report Type: 
  Country: None (occurrence: None)
  Receive Date: 20120423
  Receipt Date: 20120417
  Transmission Date: 20120825
  Serious: No
  Sender: FDA-Public Use
  Company Number: US-BIOGENIDEC-2012BI013511

PATIENT
  Sex: Female

DRUGS (2)
  1. VITAMIN B-12 [Concomitant]
  2. TYSABRI [Suspect]
     Indication: MULTIPLE SCLEROSIS
     Route: 042
     Dates: start: 20120319

REACTIONS (8)
  - PAIN IN EXTREMITY [None]
  - NAUSEA [None]
  - FATIGUE [None]
  - DIARRHOEA [None]
  - PAIN [None]
  - HEADACHE [None]
  - ANXIETY [None]
  - VOMITING [None]
